FAERS Safety Report 9501577 (Version 1)
Quarter: 2013Q3

REPORT INFORMATION
  Report Type: Report from Study
  Country: US (occurrence: US)
  Receive Date: 20130905
  Receipt Date: 20130905
  Transmission Date: 20140515
  Serious: Yes (Hospitalization)
  Sender: FDA-Public Use
  Company Number: US-BAXTER-2013BAX034357

PATIENT
  Age: 56 Year
  Sex: Female
  Weight: 85.7 kg

DRUGS (8)
  1. CYCLOPHOSPHAMIDE FOR INJECTION, USP [Suspect]
     Indication: BREAST CANCER
     Route: 042
     Dates: start: 20120327, end: 20120508
  2. DOXORUBICIN HCL [Suspect]
     Indication: BREAST CANCER
     Route: 042
     Dates: start: 20120327, end: 20120508
  3. NERATINIB [Suspect]
     Indication: BREAST CANCER
     Route: 048
     Dates: start: 20111212, end: 20120326
  4. PACLITAXEL [Suspect]
     Indication: BREAST CANCER
     Route: 042
     Dates: start: 20111212, end: 20120326
  5. HYDROCHLOROTHIAZIDE [Suspect]
     Indication: HYPERTENSION
     Route: 048
     Dates: start: 20070128
  6. LISINOPRIL [Suspect]
     Indication: HYPERTENSION
     Route: 048
     Dates: start: 20081021
  7. AMLODIPINE [Suspect]
     Indication: HYPERTENSION
     Route: 048
     Dates: start: 20080303
  8. ZANTAC [Concomitant]
     Indication: GASTRIC ULCER
     Route: 065
     Dates: start: 20070128, end: 20080804

REACTIONS (1)
  - Dizziness [Recovered/Resolved]
